FAERS Safety Report 15801242 (Version 2)
Quarter: 2019Q1

REPORT INFORMATION
  Report Type: Spontaneous
  Country: NO (occurrence: NO)
  Receive Date: 20190109
  Receipt Date: 20190111
  Transmission Date: 20190417
  Serious: Yes (Death, Hospitalization)
  Sender: FDA-Public Use
  Company Number: NO-B.I. PHARMACEUTICALS,INC./RIDGEFIELD-2018-BI-055890

PATIENT
  Age: 74 Year
  Sex: Male

DRUGS (1)
  1. OFEV [Suspect]
     Active Substance: NINTEDANIB
     Indication: IDIOPATHIC PULMONARY FIBROSIS
     Route: 065
     Dates: start: 201505, end: 20181218

REACTIONS (2)
  - Lung adenocarcinoma stage II [Fatal]
  - Pneumocystis jirovecii infection [Fatal]

NARRATIVE: CASE EVENT DATE: 201705
